FAERS Safety Report 9567468 (Version 1)
Quarter: 2013Q3

REPORT INFORMATION
  Report Type: Spontaneous
  Country: US (occurrence: US)
  Receive Date: 20130930
  Receipt Date: 20130930
  Transmission Date: 20140515
  Serious: No
  Sender: FDA-Public Use
  Company Number: US-AMGEN-USASP2012073656

PATIENT
  Sex: Female

DRUGS (8)
  1. ENBREL [Suspect]
     Indication: RHEUMATOID ARTHRITIS
     Dosage: 50 MG, QWK
     Route: 058
  2. SINGULAIR [Concomitant]
     Dosage: 10 MG, UNK
  3. METHOTREXATE [Concomitant]
     Dosage: 2.5 MG, UNK
  4. VICODIN [Concomitant]
     Dosage: 7.5-300
  5. CYCLOBENZAPRINE [Concomitant]
     Dosage: 10 MG, UNK
  6. LABETALOL [Concomitant]
     Dosage: 100 MG, UNK
  7. LEVOTHYROXINE [Concomitant]
     Dosage: 137 MCG, UNK
  8. TRIAMTERENE/HCTZ [Concomitant]
     Dosage: 25-37.5

REACTIONS (4)
  - Arthralgia [Unknown]
  - Pain in extremity [Unknown]
  - Injection site haemorrhage [Unknown]
  - Injection site pain [Unknown]
